FAERS Safety Report 24028528 (Version 1)
Quarter: 2024Q2

REPORT INFORMATION
  Report Type: Spontaneous
  Country: FR (occurrence: FR)
  Receive Date: 20240628
  Receipt Date: 20240628
  Transmission Date: 20240716
  Serious: Yes (Other)
  Sender: FDA-Public Use
  Company Number: FR-AFSSAPS-AVPO2024000096

PATIENT
  Age: 25 Year
  Sex: Male

DRUGS (2)
  1. TRAMADOL [Suspect]
     Active Substance: TRAMADOL\TRAMADOL HYDROCHLORIDE
     Indication: Product used for unknown indication
     Dosage: UNK (INITIALLY TRAMADOL LP 100MG 2 TIMES / DAYTHEN SWITCHED IN 2022 TO TRAMADOL LP 150MG 2 TIMES / D
     Route: 048
     Dates: start: 2020
  2. CODEINE\HERBALS [Suspect]
     Active Substance: CODEINE\HERBALS
     Indication: Product used for unknown indication
     Dosage: UNK
     Route: 048
     Dates: start: 2020

REACTIONS (3)
  - Dependence [Unknown]
  - Drug abuse [Unknown]
  - Sedation [Unknown]

NARRATIVE: CASE EVENT DATE: 20200101
